FAERS Safety Report 20746916 (Version 1)
Quarter: 2022Q2

REPORT INFORMATION
  Report Type: Other
  Country: None (occurrence: CA)
  Receive Date: 20220425
  Receipt Date: 20220425
  Transmission Date: 20220721
  Serious: Yes (Other)
  Sender: FDA-Public Use
  Company Number: CA-Jacobus Pharmaceutical Company, Inc.-2128136

PATIENT
  Age: 59 Year
  Sex: Female

DRUGS (3)
  1. DAPSONE [Suspect]
     Active Substance: DAPSONE
  2. QUINACRINE [Suspect]
     Active Substance: QUINACRINE
  3. METHOTREXATE [Suspect]
     Active Substance: METHOTREXATE

REACTIONS (4)
  - Cutaneous lupus erythematosus [Unknown]
  - Drug ineffective [Unknown]
  - Drug intolerance [Unknown]
  - Osteonecrosis [Unknown]
